FAERS Safety Report 17664706 (Version 1)
Quarter: 2020Q2

REPORT INFORMATION
  Report Type: Other
  Country: GB (occurrence: GB)
  Receive Date: 20200414
  Receipt Date: 20200414
  Transmission Date: 20200713
  Serious: Yes (Hospitalization, Other)
  Sender: FDA-Public Use
  Company Number: GB-NOVA LABORATORIS LIMITED-2082816

PATIENT
  Age: 10 Year
  Sex: Female

DRUGS (1)
  1. PURIXAN [Suspect]
     Active Substance: MERCAPTOPURINE
     Indication: B-CELL TYPE ACUTE LEUKAEMIA

REACTIONS (5)
  - Coagulopathy [Recovered/Resolved]
  - Hyperbilirubinaemia [Recovered/Resolved]
  - Hepatic encephalopathy [Recovered/Resolved]
  - Hypoglycaemia [Recovered/Resolved]
  - Hepatotoxicity [Recovered/Resolved]
